FAERS Safety Report 18500353 (Version 1)
Quarter: 2020Q4

REPORT INFORMATION
  Report Type: Spontaneous
  Country: MX (occurrence: MX)
  Receive Date: 20201112
  Receipt Date: 20201112
  Transmission Date: 20210114
  Serious: Yes (Life-Threatening, Disabling)
  Sender: FDA-Public Use
  Company Number: None

PATIENT
  Age: 33 Year
  Sex: Female
  Weight: 62.5 kg

DRUGS (4)
  1. LAMOTRIGINE. [Suspect]
     Active Substance: LAMOTRIGINE
  2. RAAMFEN [Suspect]
     Active Substance: DIPHENIDOL HYDROCHLORIDE
     Indication: VERTIGO
     Dosage: ?          QUANTITY:2 TABLET(S);?
     Route: 048
     Dates: start: 20201012, end: 20201013
  3. LORAZEPAM. [Concomitant]
     Active Substance: LORAZEPAM
  4. LAMISIL [Suspect]
     Active Substance: TERBINAFINE HYDROCHLORIDE
     Indication: TINEA VERSICOLOUR
     Dosage: ?          QUANTITY:1 TABLET(S);?
     Route: 048
     Dates: start: 20201012, end: 20201015

REACTIONS (20)
  - Suicidal ideation [None]
  - Fungal skin infection [None]
  - Delirium [None]
  - Hypersomnia [None]
  - Coordination abnormal [None]
  - Anxiety [None]
  - Impaired work ability [None]
  - Vomiting [None]
  - Balance disorder [None]
  - Vertigo [None]
  - Multiple allergies [None]
  - Crying [None]
  - Hallucination [None]
  - Nausea [None]
  - Depression [None]
  - Headache [None]
  - Fear [None]
  - Discomfort [None]
  - Pain [None]
  - Stress [None]

NARRATIVE: CASE EVENT DATE: 20201013
